FAERS Safety Report 13711079 (Version 1)
Quarter: 2017Q3

REPORT INFORMATION
  Report Type: Spontaneous
  Country: FR (occurrence: FR)
  Receive Date: 20170703
  Receipt Date: 20170703
  Transmission Date: 20171127
  Serious: Yes (Other)
  Sender: FDA-Public Use
  Company Number: FR-BAYER-2017-126145

PATIENT
  Age: 48 Year
  Sex: Female
  Weight: 48 kg

DRUGS (1)
  1. MIRENA [Suspect]
     Active Substance: LEVONORGESTREL
     Indication: CONTRACEPTION
     Dosage: 20 MCG/24HR, CONT
     Route: 015
     Dates: start: 201209, end: 20170601

REACTIONS (6)
  - Anxiety [Unknown]
  - Hair growth abnormal [Unknown]
  - Malaise [Unknown]
  - Alopecia [Unknown]
  - Osteoarthritis [Unknown]
  - Amnesia [Unknown]
